FAERS Safety Report 22291945 (Version 2)
Quarter: 2023Q2

REPORT INFORMATION
  Report Type: Report from Study
  Country: US (occurrence: US)
  Receive Date: 20230508
  Receipt Date: 20230526
  Transmission Date: 20230721
  Serious: Yes (Hospitalization, Other)
  Sender: FDA-Public Use
  Company Number: US-ABBVIE-4752514

PATIENT
  Sex: Female

DRUGS (2)
  1. RINVOQ [Suspect]
     Active Substance: UPADACITINIB
     Indication: Product used for unknown indication
     Dosage: DRUG START DATE-20 JAN 2023
     Route: 048
     Dates: start: 20230120
  2. RINVOQ [Suspect]
     Active Substance: UPADACITINIB
     Indication: Product used for unknown indication
     Route: 048
     Dates: start: 20210320

REACTIONS (14)
  - Implantable defibrillator insertion [Recovered/Resolved]
  - Pancreatic cyst [Not Recovered/Not Resolved]
  - Pain in extremity [Not Recovered/Not Resolved]
  - Hospitalisation [Recovering/Resolving]
  - Post procedural complication [Unknown]
  - Optic ischaemic neuropathy [Unknown]
  - Asthenia [Unknown]
  - Cold sweat [Unknown]
  - Pollakiuria [Unknown]
  - Blood pressure abnormal [Unknown]
  - Gastrointestinal disorder [Unknown]
  - Fall [Unknown]
  - Visual impairment [Unknown]
  - Hospitalisation [Unknown]

NARRATIVE: CASE EVENT DATE: 20230101
